FAERS Safety Report 10329961 (Version 1)
Quarter: 2014Q3

REPORT INFORMATION
  Report Type: Spontaneous
  Country: BR (occurrence: BR)
  Receive Date: 20140721
  Receipt Date: 20140721
  Transmission Date: 20150326
  Serious: Yes (Other)
  Sender: FDA-Public Use
  Company Number: BR-GLAXOSMITHKLINE-A1081865A

PATIENT
  Sex: Male

DRUGS (1)
  1. COMBODART [Suspect]
     Active Substance: DUTASTERIDE\TAMSULOSIN
     Indication: PRODUCT USED FOR UNKNOWN INDICATION
     Route: 048

REACTIONS (2)
  - Drug ineffective [Unknown]
  - Urinary retention [Unknown]
